FAERS Safety Report 7395027 (Version 2)
Quarter: 2014Q3

REPORT INFORMATION
  Report Type: Spontaneous
  Country: US (occurrence: None)
  Receive Date: 20100513
  Receipt Date: 20140919
  Transmission Date: 20150326
  Serious: Yes (Other)
  Sender: FDA-Public Use
  Company Number: 2010S1002639

PATIENT
  Age: 61 Year
  Sex: Male

DRUGS (7)
  1. TRIAMCINOLON /00031901/ (TRIAMCINOLONE) [Concomitant]
  2. LISINOPRIL. [Concomitant]
     Active Substance: LISINOPRIL
  3. SIMVASTATIN. [Concomitant]
     Active Substance: SIMVASTATIN
  4. PHOSPHO-SODA [Suspect]
     Active Substance: SODIUM PHOSPHATE, DIBASIC\SODIUM PHOSPHATE, MONOBASIC
     Indication: COLONOSCOPY
     Dosage: PO
     Route: 048
     Dates: start: 20080713, end: 20080713
  5. DULCOLAX [Suspect]
     Active Substance: BISACODYL OR DOCUSATE SODIUM
     Route: 048
  6. LEVOTHYROXINE SODIUM. [Concomitant]
     Active Substance: LEVOTHYROXINE SODIUM
  7. NIFEDIPINE. [Concomitant]
     Active Substance: NIFEDIPINE

REACTIONS (13)
  - Renal tubular necrosis [None]
  - Blood erythropoietin decreased [None]
  - Renal disorder [None]
  - Hyperparathyroidism secondary [None]
  - Depression [None]
  - Renal failure acute [None]
  - Prostatomegaly [None]
  - Acute phosphate nephropathy [None]
  - Nephrosclerosis [None]
  - Blood creatinine increased [None]
  - Diverticulum [None]
  - Hypovolaemia [None]
  - Renal cyst [None]

NARRATIVE: CASE EVENT DATE: 20080812
